FAERS Safety Report 23321561 (Version 1)
Quarter: 2023Q4

REPORT INFORMATION
  Report Type: Spontaneous
  Country: None (occurrence: CA)
  Receive Date: 20231220
  Receipt Date: 20231220
  Transmission Date: 20240110
  Serious: Yes (Other)
  Sender: FDA-Public Use
  Company Number: CA-Harrow Eye-2149604

PATIENT
  Age: 33 Year
  Sex: Male
  Weight: 130 kg

DRUGS (3)
  1. VIGAMOX [Suspect]
     Active Substance: MOXIFLOXACIN HYDROCHLORIDE
     Indication: Eye infection
     Route: 047
  2. AMLODIPINE [Concomitant]
     Active Substance: AMLODIPINE BESYLATE
  3. VALSARTAN [Concomitant]
     Active Substance: VALSARTAN

REACTIONS (6)
  - Back pain [Unknown]
  - Burning sensation [Unknown]
  - Hypokinesia [Unknown]
  - Musculoskeletal discomfort [Unknown]
  - Tendon pain [Unknown]
  - Arthralgia [Unknown]
